FAERS Safety Report 15978323 (Version 1)
Quarter: 2019Q1

REPORT INFORMATION
  Report Type: Spontaneous
  Country: US (occurrence: US)
  Receive Date: 20190219
  Receipt Date: 20190219
  Transmission Date: 20190418
  Serious: No
  Sender: FDA-Public Use
  Company Number: US-BRISTOL-MYERS SQUIBB COMPANY-BMS-2019-016362

PATIENT

DRUGS (4)
  1. PLAQUENIL                          /00072602/ [Concomitant]
     Active Substance: HYDROXYCHLOROQUINE DIPHOSPHATE
     Indication: LICHEN PLANOPILARIS
     Dosage: UNK
     Route: 065
     Dates: start: 2014, end: 2016
  2. DAPSONE. [Concomitant]
     Active Substance: DAPSONE
     Indication: LICHEN PLANOPILARIS
     Dosage: UNK
     Route: 065
     Dates: start: 2014, end: 2016
  3. KENALOG [Suspect]
     Active Substance: TRIAMCINOLONE ACETONIDE
     Indication: LICHEN PLANOPILARIS
     Dosage: UNK
     Route: 065
     Dates: start: 2014, end: 2016
  4. PREDNISONE. [Concomitant]
     Active Substance: PREDNISONE
     Indication: LICHEN PLANOPILARIS
     Dosage: UNK
     Route: 065
     Dates: start: 2014, end: 2016

REACTIONS (1)
  - Treatment failure [Unknown]
